FAERS Safety Report 7949575-6 (Version None)
Quarter: 2011Q4

REPORT INFORMATION
  Report Type: 
  Country: None (occurrence: None)
  Receive Date: 20111130
  Receipt Date: 20111115
  Transmission Date: 20120403
  Serious: Yes (Other)
  Sender: FDA-Public Use
  Company Number: US-BAYER-2011-023291

PATIENT
  Age: 24 Year
  Sex: Female
  Weight: 95 kg

DRUGS (4)
  1. YAZ [Suspect]
     Indication: CONTRACEPTION
     Dosage: UNK
     Dates: start: 20070901, end: 20090501
  2. NAPROXEN (ALEVE) [Concomitant]
     Dosage: UNK
     Dates: start: 19960101
  3. IBUPROFEN (ADVIL) [Concomitant]
     Dosage: UNK
     Dates: start: 19960101
  4. MOTRIN [Concomitant]
     Dosage: UNK
     Dates: start: 19960101

REACTIONS (9)
  - GENERAL PHYSICAL CONDITION ABNORMAL [None]
  - MUSCLE STRAIN [None]
  - PAIN [None]
  - EMOTIONAL DISTRESS [None]
  - GENERAL PHYSICAL HEALTH DETERIORATION [None]
  - INJURY [None]
  - DEEP VEIN THROMBOSIS [None]
  - PAIN IN EXTREMITY [None]
  - ANXIETY [None]
